FAERS Safety Report 8963965 (Version 1)
Quarter: 2012Q4

REPORT INFORMATION
  Report Type: 
  Country: US (occurrence: US)
  Receive Date: 20121214
  Receipt Date: 20121214
  Transmission Date: 20130627
  Serious: Yes (Other)
  Sender: FDA-Public Use
  Company Number: US-AMGEN-USASP2012078127

PATIENT
  Sex: Male

DRUGS (1)
  1. ENBREL [Suspect]
     Indication: ANKYLOSING SPONDYLITIS
     Dosage: 50 mg, qwk
     Dates: start: 20110120

REACTIONS (4)
  - Iritis [Recovered/Resolved]
  - Visual field defect [Recovered/Resolved]
  - Nausea [Recovered/Resolved]
  - Drug effect delayed [Recovered/Resolved]
